FAERS Safety Report 17115590 (Version 5)
Quarter: 2020Q1

REPORT INFORMATION
  Report Type: Spontaneous
  Country: JP (occurrence: JP)
  Receive Date: 20191205
  Receipt Date: 20200312
  Transmission Date: 20200409
  Serious: Yes (Other)
  Sender: FDA-Public Use
  Company Number: JP-ASTRAZENECA-2019SF72376

PATIENT
  Age: 23120 Day
  Sex: Female
  Weight: 49 kg

DRUGS (4)
  1. HIRUDOID [Concomitant]
     Active Substance: GLYCOSAMINOGLYCANS
  2. MYSER [Concomitant]
  3. LOCOID [Concomitant]
     Active Substance: HYDROCORTISONE BUTYRATE
  4. TAGRISSO [Suspect]
     Active Substance: OSIMERTINIB
     Indication: NON-SMALL CELL LUNG CANCER
     Route: 048
     Dates: start: 20191111, end: 20191125

REACTIONS (3)
  - Fall [Recovered/Resolved]
  - Ventricular extrasystoles [Recovering/Resolving]
  - Syncope [Recovered/Resolved]

NARRATIVE: CASE EVENT DATE: 20191120
